FAERS Safety Report 7064367-0 (Version None)
Quarter: 2010Q4

REPORT INFORMATION
  Report Type: 
  Country: None (occurrence: None)
  Receive Date: 20101027
  Receipt Date: 20101021
  Transmission Date: 20110411
  Serious: Yes (Hospitalization)
  Sender: FDA-Public Use
  Company Number: US-BRISTOL-MYERS SQUIBB COMPANY-15346497

PATIENT
  Age: 71 Year
  Sex: Female
  Weight: 50 kg

DRUGS (2)
  1. IXABEPILONE [Suspect]
     Indication: BREAST CANCER
     Dosage: INTER ON 15OCT2010 CYCLE 11 DAY 1  1A 20MG
     Dates: start: 20100319
  2. CARBOPLATIN [Suspect]
     Indication: BREAST CANCER
     Dosage: INTER ON 15OCT2010 CYCLE 11 DAY 1  1A20MG
     Dates: start: 20100319

REACTIONS (1)
  - HYPOVOLAEMIA [None]
